FAERS Safety Report 4322128-7 (Version None)
Quarter: 2004Q1

REPORT INFORMATION
  Report Type: 
  Country: None (occurrence: None)
  Receive Date: 20040319
  Receipt Date: 20040303
  Transmission Date: 20041129
  Serious: Yes (Other)
  Sender: FDA-Public Use
  Company Number: 2004-DE-01063GD (0)

PATIENT
  Sex: 0

DRUGS (3)
  1. METHOTREXATE [Suspect]
     Indication: PROPHYLAXIS AGAINST TRANSPLANT REJECTION
     Dosage: 10 MG/ME2
  2. GRANULOCYTE COLONY STIMULATING FACTOR (GRANULOCYTE COLONY STIMULATING [Concomitant]
  3. NYSTATIN [Concomitant]

REACTIONS (7)
  - APHASIA [None]
  - APRAXIA [None]
  - ASTHENIA [None]
  - COORDINATION ABNORMAL [None]
  - DEMYELINATION [None]
  - GAIT DISTURBANCE [None]
  - VIRUS SEROLOGY TEST POSITIVE [None]
